FAERS Safety Report 5870438-4 (Version None)
Quarter: 2008Q3

REPORT INFORMATION
  Report Type: 
  Country: None (occurrence: None)
  Receive Date: 20080904
  Receipt Date: 20080619
  Transmission Date: 20090109
  Serious: No
  Sender: FDA-Public Use
  Company Number: US-BRISTOL-MYERS SQUIBB COMPANY-14234652

PATIENT
  Age: 5 Decade
  Sex: Female

DRUGS (2)
  1. DEFINITY [Suspect]
  2. DOBUTAMINE HCL [Suspect]
     Indication: CARDIAC STRESS TEST

REACTIONS (2)
  - ABDOMINAL PAIN [None]
  - CHEST PAIN [None]
